FAERS Safety Report 7420718-6 (Version None)
Quarter: 2011Q2

REPORT INFORMATION
  Report Type: 
  Country: None (occurrence: None)
  Receive Date: 20110418
  Receipt Date: 20101222
  Transmission Date: 20111010
  Serious: Yes (Hospitalization, Other)
  Sender: FDA-Public Use
  Company Number: US-BAYER-201035069NA

PATIENT
  Age: 19 Year
  Sex: Female
  Weight: 61 kg

DRUGS (4)
  1. YASMIN [Suspect]
     Indication: ORAL CONTRACEPTION
     Dates: start: 20071116, end: 20090806
  2. OCELLA [Suspect]
     Indication: ORAL CONTRACEPTION
     Dates: start: 20071116, end: 20090806
  3. OCELLA [Suspect]
     Indication: ACNE
  4. YASMIN [Suspect]
     Indication: ACNE
     Dosage: UNK
     Dates: end: 20090902

REACTIONS (5)
  - UMBILICAL HERNIA [None]
  - ABDOMINAL PAIN UPPER [None]
  - ABDOMINAL PAIN [None]
  - CHOLELITHIASIS [None]
  - CHOLECYSTITIS CHRONIC [None]
